FAERS Safety Report 25865793 (Version 2)
Quarter: 2025Q4

REPORT INFORMATION
  Report Type: Spontaneous
  Country: EU (occurrence: EU)
  Receive Date: 20250930
  Receipt Date: 20251010
  Transmission Date: 20260118
  Serious: Yes (Life-Threatening, Hospitalization)
  Sender: SANDOZ
  Company Number: EU-MLMSERVICE-20250918-PI649761-00029-1

PATIENT
  Sex: Female

DRUGS (1)
  1. ACETAMINOPHEN [Suspect]
     Active Substance: ACETAMINOPHEN
     Indication: Product used for unknown indication
     Dosage: 56 G, QD (INGESTION)
     Route: 048

REACTIONS (7)
  - Hypothermia [Unknown]
  - Lactic acidosis [Unknown]
  - Loss of consciousness [Unknown]
  - Suicide attempt [Unknown]
  - Renal impairment [Unknown]
  - Toxicity to various agents [Unknown]
  - Intentional overdose [Unknown]
